FAERS Safety Report 4674296-5 (Version None)
Quarter: 2005Q2

REPORT INFORMATION
  Report Type: 
  Country: None (occurrence: None)
  Receive Date: 20050526
  Receipt Date: 20050513
  Transmission Date: 20051028
  Serious: Yes (Hospitalization)
  Sender: FDA-Public Use
  Company Number: HR-BOEHRINGER INGELHEIM PHARMACEUTICALS, INC.-2005-DE-01918GL

PATIENT
  Sex: Male

DRUGS (5)
  1. TELMISARTAN [Suspect]
     Indication: HYPERTENSION
     Route: 048
  2. LISINOPRIL [Concomitant]
  3. MEDIGOXIN [Concomitant]
  4. FRUSEMIDE [Concomitant]
  5. FLUTICASONE+SALMETEROL [Concomitant]

REACTIONS (2)
  - DEPRESSION [None]
  - SUICIDAL IDEATION [None]
